FAERS Safety Report 5928410-1 (Version None)
Quarter: 2008Q4

REPORT INFORMATION
  Report Type: 
  Country: None (occurrence: None)
  Receive Date: 20081023
  Receipt Date: 20081014
  Transmission Date: 20090506
  Serious: Yes (Other)
  Sender: FDA-Public Use
  Company Number: FR-PFIZER INC-2008086834

PATIENT
  Sex: Female

DRUGS (1)
  1. SALAZOPYRINE [Suspect]

REACTIONS (2)
  - CYTOLYTIC HEPATITIS [None]
  - TOXIC SKIN ERUPTION [None]
